FAERS Safety Report 9072532 (Version 1)
Quarter: 2013Q1

REPORT INFORMATION
  Report Type: Report from Study
  Country: US (occurrence: US)
  Receive Date: 20130129
  Receipt Date: 20130129
  Transmission Date: 20140127
  Serious: No
  Sender: FDA-Public Use
  Company Number: US-ABBOTT-12P-163-0920469-00

PATIENT
  Age: 41 Year
  Sex: Female

DRUGS (7)
  1. HUMIRA 40 MG/0.8 ML PEN [Suspect]
     Indication: RHEUMATOID ARTHRITIS
     Dates: start: 201111
  2. METHOTREXATE [Concomitant]
     Indication: PRODUCT USED FOR UNKNOWN INDICATION
     Dosage: 0.6 INJECTABLE WEEKLY
  3. METOPROLOL XL [Concomitant]
     Indication: BLOOD PRESSURE
     Dosage: 100 MG DAILY
  4. FOLIC ACID [Concomitant]
     Indication: PRODUCT USED FOR UNKNOWN INDICATION
     Dosage: 1 MG DAILY
  5. XANAX [Concomitant]
     Indication: MUSCLE TWITCHING
     Dosage: 0.25 MG UP TO 3 TIMES DAILY, AS REQUIRED (USES IT 4-5 TIMES PER WK)
  6. XANAX [Concomitant]
     Indication: RELAXATION THERAPY
  7. VICODIN [Concomitant]
     Indication: PAIN
     Dosage: UNKNOWN DOSE, AS REQUIRED (4 TO 5 TIMES PER WEEK)

REACTIONS (6)
  - Dizziness [Unknown]
  - Loss of consciousness [Recovered/Resolved]
  - Abdominal pain [Not Recovered/Not Resolved]
  - Diarrhoea [Not Recovered/Not Resolved]
  - Dizziness [Unknown]
  - Diverticulitis [Unknown]
